FAERS Safety Report 8067633-5 (Version None)
Quarter: 2012Q1

REPORT INFORMATION
  Report Type: 
  Country: None (occurrence: None)
  Receive Date: 20120124
  Receipt Date: 20120113
  Transmission Date: 20120608
  Serious: Yes (Death, Other)
  Sender: FDA-Public Use
  Company Number: US-BAXTER-2012BH000506

PATIENT
  Age: 69 Year
  Sex: Male

DRUGS (1)
  1. DIANEAL [Suspect]
     Indication: PERITONEAL DIALYSIS
     Route: 033
     Dates: start: 20100101, end: 20120101

REACTIONS (6)
  - DEATH [None]
  - URINARY TRACT INFECTION [None]
  - SKIN DISCOLOURATION [None]
  - PAIN IN EXTREMITY [None]
  - WOUND DRAINAGE [None]
  - PENILE DISCHARGE [None]
